FAERS Safety Report 6313291-7 (Version None)
Quarter: 2009Q3

REPORT INFORMATION
  Report Type: 
  Country: None (occurrence: None)
  Receive Date: 20090818
  Receipt Date: 20090811
  Transmission Date: 20100115
  Serious: Yes (Death, Life-Threatening, Hospitalization, Disabling, Other)
  Sender: FDA-Public Use
  Company Number: A0798614A

PATIENT
  Age: 42 Year
  Sex: Female

DRUGS (4)
  1. LAMICTAL [Suspect]
     Indication: BIPOLAR DISORDER
     Dosage: 25MG PER DAY
     Route: 048
     Dates: start: 20090515, end: 20090525
  2. CELEXA [Suspect]
     Indication: BIPOLAR DISORDER
     Dosage: 20MG PER DAY
     Dates: start: 20090515, end: 20090525
  3. AMBIEN [Concomitant]
     Route: 048
  4. UNKNOWN HIV MED [Concomitant]

REACTIONS (3)
  - BLISTER [None]
  - CEREBROVASCULAR ACCIDENT [None]
  - RASH [None]
